FAERS Safety Report 16548844 (Version 5)
Quarter: 2024Q1

REPORT INFORMATION
  Report Type: Report from Study
  Country: CA (occurrence: CA)
  Receive Date: 20190709
  Receipt Date: 20240222
  Transmission Date: 20240410
  Serious: Yes (Other)
  Sender: FDA-Public Use
  Company Number: PHHY2019CA097804

PATIENT
  Age: 64 Year
  Sex: Male

DRUGS (3)
  1. COSENTYX [Suspect]
     Active Substance: SECUKINUMAB
     Indication: Psoriasis
     Dosage: 300 MG, QMO
     Route: 058
     Dates: start: 20181024
  2. COSENTYX [Suspect]
     Active Substance: SECUKINUMAB
     Indication: Psoriatic arthropathy
     Dosage: 300 MG, QMO
     Route: 058
     Dates: end: 2019
  3. DIPROSONE [Concomitant]
     Active Substance: BETAMETHASONE DIPROPIONATE
     Indication: Product used for unknown indication
     Dosage: UNK
     Route: 065

REACTIONS (13)
  - Cellulitis [Unknown]
  - Oedema peripheral [Unknown]
  - Joint effusion [Unknown]
  - Erythema [Recovered/Resolved]
  - Bone marrow oedema [Unknown]
  - Osteomyelitis [Unknown]
  - Arthritis bacterial [Unknown]
  - Pruritus [Not Recovered/Not Resolved]
  - Pain of skin [Unknown]
  - Musculoskeletal stiffness [Unknown]
  - Arthritis [Unknown]
  - Spinal fusion acquired [Unknown]
  - Infection [Unknown]

NARRATIVE: CASE EVENT DATE: 20190101
